FAERS Safety Report 6152154-7 (Version None)
Quarter: 2009Q2

REPORT INFORMATION
  Report Type: 
  Country: None (occurrence: None)
  Receive Date: 20090409
  Receipt Date: 20090409
  Transmission Date: 20091009
  Serious: Yes (Hospitalization)
  Sender: FDA-Public Use
  Company Number: None

PATIENT
  Sex: Male
  Weight: 78.4723 kg

DRUGS (1)
  1. DIGOXIN [Suspect]
     Dosage: 1 TABLET DAILY

REACTIONS (8)
  - BLOOD DISORDER [None]
  - CARDIAC FAILURE CONGESTIVE [None]
  - DEVICE RELATED INFECTION [None]
  - HYPOTENSION [None]
  - INJECTION SITE INFECTION [None]
  - LIVER DISORDER [None]
  - RENAL DISORDER [None]
  - STAPHYLOCOCCAL INFECTION [None]
